FAERS Safety Report 17083711 (Version 2)
Quarter: 2020Q1

REPORT INFORMATION
  Report Type: Report from Study
  Country: US (occurrence: US)
  Receive Date: 20191127
  Receipt Date: 20200220
  Transmission Date: 20200409
  Serious: Yes (Death, Life-Threatening, Hospitalization)
  Sender: FDA-Public Use
  Company Number: US-CELGENEUS-USA-20191108360

PATIENT
  Age: 70 Year
  Sex: Male
  Weight: 66.6 kg

DRUGS (3)
  1. ABRAXANE [Suspect]
     Active Substance: PACLITAXEL
     Indication: ADENOCARCINOMA
     Route: 065
     Dates: start: 20191031, end: 20191107
  2. GEMCITABINE. [Suspect]
     Active Substance: GEMCITABINE
     Indication: ADENOCARCINOMA
     Route: 065
     Dates: start: 20191031, end: 20191107
  3. CISPLATIN. [Suspect]
     Active Substance: CISPLATIN
     Indication: ADENOCARCINOMA
     Dosage: 88 MILLIGRAM
     Route: 065
     Dates: start: 20191031, end: 20191107

REACTIONS (5)
  - Enterocolitis [Not Recovered/Not Resolved]
  - White blood cell count decreased [Recovered/Resolved]
  - Sepsis [Fatal]
  - Gastric haemorrhage [Recovered/Resolved]
  - Platelet count decreased [Recovered/Resolved]

NARRATIVE: CASE EVENT DATE: 20191112
